FAERS Safety Report 8017642-7 (Version None)
Quarter: 2012Q1

REPORT INFORMATION
  Report Type: 
  Country: None (occurrence: None)
  Receive Date: 20120103
  Receipt Date: 20111220
  Transmission Date: 20120608
  Serious: Yes (Other)
  Sender: FDA-Public Use
  Company Number: CA-JNJFOC-20111211270

PATIENT
  Sex: Male
  Weight: 97.4 kg

DRUGS (1)
  1. REMICADE [Suspect]
     Indication: RHEUMATOID ARTHRITIS
     Dosage: 43RD INFUSION
     Route: 042
     Dates: start: 20110411

REACTIONS (3)
  - INFECTION [None]
  - ARTHRITIS [None]
  - FOOT FRACTURE [None]
